FAERS Safety Report 4490839-9 (Version None)
Quarter: 2004Q4

REPORT INFORMATION
  Report Type: 
  Country: None (occurrence: None)
  Receive Date: 20041027
  Receipt Date: 20041018
  Transmission Date: 20050328
  Serious: Yes (Hospitalization)
  Sender: FDA-Public Use
  Company Number: 2004UW18655

PATIENT
  Age: 39 Year
  Sex: Female
  Weight: 80 kg

DRUGS (1)
  1. BUDESONIDE + FORMOTEROL (SYMBICORT) [Suspect]
     Indication: ASTHMA
     Dosage: 160/4.5 MCG/INH
     Route: 055
     Dates: start: 20040413

REACTIONS (4)
  - BACK PAIN [None]
  - CHEST X-RAY ABNORMAL [None]
  - PNEUMONIA [None]
  - VOMITING [None]
